FAERS Safety Report 19685083 (Version 1)
Quarter: 2021Q3

REPORT INFORMATION
  Report Type: Spontaneous
  Country: US (occurrence: US)
  Receive Date: 20210810
  Receipt Date: 20210810
  Transmission Date: 20211014
  Serious: Yes (Death)
  Sender: FDA-Public Use
  Company Number: None

PATIENT
  Age: 26 Year
  Sex: Male

DRUGS (1)
  1. GREEN VEIN MAENG DA KRATOM [Suspect]
     Active Substance: HERBALS\MITRAGYNINE

REACTIONS (7)
  - Toxicity to various agents [None]
  - Hypertension [None]
  - Starvation ketoacidosis [None]
  - Seizure [None]
  - Diabetic ketosis [None]
  - Aspiration [None]
  - Arteriosclerosis coronary artery [None]

NARRATIVE: CASE EVENT DATE: 20210221
